FAERS Safety Report 4808907-8 (Version None)
Quarter: 2005Q4

REPORT INFORMATION
  Report Type: 
  Country: None (occurrence: None)
  Receive Date: 20051021
  Receipt Date: 20031009
  Transmission Date: 20060501
  Serious: No
  Sender: FDA-Public Use
  Company Number: DE_031012178

PATIENT
  Age: 24 Year
  Sex: Male

DRUGS (1)
  1. ZYPREXA [Suspect]
     Indication: SCHIZOPHRENIA
     Dosage: 25 MG/DAY
     Dates: start: 20030101, end: 20030101

REACTIONS (3)
  - CONDITION AGGRAVATED [None]
  - EOSINOPHILIA [None]
  - PRESCRIBED OVERDOSE [None]
